FAERS Safety Report 24705443 (Version 1)
Quarter: 2024Q4

REPORT INFORMATION
  Report Type: Spontaneous
  Country: US (occurrence: US)
  Receive Date: 20241206
  Receipt Date: 20241206
  Transmission Date: 20250115
  Serious: No
  Sender: ALVOGEN
  Company Number: None

PATIENT

DRUGS (1)
  1. LEVOTHYROXINE [Suspect]
     Active Substance: LEVOTHYROXINE
     Indication: Product used for unknown indication

REACTIONS (4)
  - Pain [Recovering/Resolving]
  - Emotional disorder [Recovering/Resolving]
  - Fatigue [Recovering/Resolving]
  - Product substitution issue [Unknown]
